FAERS Safety Report 13617414 (Version 1)
Quarter: 2017Q2

REPORT INFORMATION
  Report Type: Spontaneous
  Country: US (occurrence: US)
  Receive Date: 20170606
  Receipt Date: 20170606
  Transmission Date: 20170830
  Serious: No
  Sender: FDA-Public Use
  Company Number: US-SA-2017SA034058

PATIENT
  Sex: Male

DRUGS (3)
  1. LANTUS [Suspect]
     Active Substance: INSULIN GLARGINE
     Indication: DIABETES MELLITUS
     Dosage: DOSE:70 UNIT(S)
     Route: 065
     Dates: end: 2017
  2. HUMULIN NOS [Concomitant]
     Active Substance: INSULIN HUMAN
  3. HUMALOG [Concomitant]
     Active Substance: INSULIN LISPRO

REACTIONS (6)
  - Product use issue [Unknown]
  - Dyspnoea [Unknown]
  - Injection site pain [Unknown]
  - Injection site erythema [Unknown]
  - Blood glucose increased [Unknown]
  - Unevaluable event [Unknown]
